FAERS Safety Report 9356765 (Version 1)
Quarter: 2013Q2

REPORT INFORMATION
  Report Type: Spontaneous
  Country: DE (occurrence: DE)
  Receive Date: 20130619
  Receipt Date: 20130619
  Transmission Date: 20140414
  Serious: Yes (Other)
  Sender: FDA-Public Use
  Company Number: DE-UCBSA-086207

PATIENT
  Age: 59 Year
  Sex: Female
  Weight: 67 kg

DRUGS (3)
  1. NEUPRO [Suspect]
     Indication: RESTLESS LEGS SYNDROME
     Dosage: 2 MG/24 H
     Dates: start: 2013, end: 2013
  2. NEUPRO [Suspect]
     Indication: RESTLESS LEGS SYNDROME
     Dosage: 1 MG/24 H
     Route: 062
     Dates: start: 20130211, end: 20130508
  3. L-THYROXIN BETA [Concomitant]
     Indication: HYPOTHYROIDISM
     Dosage: STRENGTH-200 MG; FREQUENCY-1
     Route: 048
     Dates: start: 20110202

REACTIONS (5)
  - Dermatitis contact [Recovering/Resolving]
  - Urticaria papular [Recovering/Resolving]
  - Rash [Recovering/Resolving]
  - Application site reaction [Unknown]
  - Blister [Unknown]
